FAERS Safety Report 18431075 (Version 2)
Quarter: 2020Q4

REPORT INFORMATION
  Report Type: Report from Study
  Country: US (occurrence: US)
  Receive Date: 20201027
  Receipt Date: 20201104
  Transmission Date: 20210114
  Serious: No
  Sender: FDA-Public Use
  Company Number: US-BRISTOL-MYERS SQUIBB COMPANY-BMS-2020-088556

PATIENT
  Sex: Male
  Weight: 67.1 kg

DRUGS (1)
  1. APIXABAN [Suspect]
     Active Substance: APIXABAN
     Indication: DEEP VEIN THROMBOSIS
     Dosage: UNK UNK, Q12H
     Route: 048

REACTIONS (2)
  - Gastrooesophageal reflux disease [Unknown]
  - Musculoskeletal chest pain [Unknown]
